FAERS Safety Report 13075526 (Version 3)
Quarter: 2019Q1

REPORT INFORMATION
  Report Type: Spontaneous
  Country: IT (occurrence: IT)
  Receive Date: 20161230
  Receipt Date: 20190208
  Transmission Date: 20190417
  Serious: Yes (Other)
  Sender: FDA-Public Use
  Company Number: IT-JNJFOC-20161223565

PATIENT
  Age: 5 Year
  Sex: Female
  Weight: 19 kg

DRUGS (3)
  1. ZIRTEC [Suspect]
     Active Substance: CETIRIZINE HYDROCHLORIDE
     Indication: URTICARIA
     Dosage: 1 DF DAILY
     Route: 048
     Dates: start: 20150923, end: 20150927
  2. ZIRTEC [Suspect]
     Active Substance: CETIRIZINE HYDROCHLORIDE
     Route: 048
  3. TINSET [Suspect]
     Active Substance: OXATOMIDE
     Indication: URTICARIA
     Dosage: 2 DOSAGE FORM (DF), DAILY
     Route: 048
     Dates: start: 20150923, end: 20150927

REACTIONS (3)
  - Drug ineffective [Unknown]
  - Generalised oedema [Unknown]
  - Urticaria [Unknown]

NARRATIVE: CASE EVENT DATE: 20150927
